FAERS Safety Report 4368823-5 (Version None)
Quarter: 2004Q2

REPORT INFORMATION
  Report Type: 
  Country: None (occurrence: None)
  Receive Date: 20040528
  Receipt Date: 20040518
  Transmission Date: 20050107
  Serious: Yes (Disabling)
  Sender: FDA-Public Use
  Company Number: 04P-163-0259621-00

PATIENT
  Sex: Female
  Weight: 85.7298 kg

DRUGS (14)
  1. HUMIRA [Suspect]
     Indication: RHEUMATOID ARTHRITIS
     Dosage: 40 MG, 1 IN 2 WK, SUBCUTANEOUS
     Route: 058
     Dates: end: 20031215
  2. DIPHENHYDRAMINE HCL [Concomitant]
  3. METHOTREXATE [Concomitant]
  4. ALENDRONATE SODIUM [Concomitant]
  5. LOPERAMIDE HCL [Concomitant]
  6. NORTRIPTYLINE HCL [Concomitant]
  7. HYDROXYCHLOROQUINE PHOSPHATE [Concomitant]
  8. LOMOTIL [Concomitant]
  9. PREDNISONE [Concomitant]
  10. CIPROFLOXACIN [Concomitant]
  11. ACETAMINOPHEN [Concomitant]
  12. ASCORBIC ACID [Concomitant]
  13. CALCIUM [Concomitant]
  14. MULTI-VITAMINS [Concomitant]

REACTIONS (3)
  - BALANCE DISORDER [None]
  - FALL [None]
  - GAIT DISTURBANCE [None]
